FAERS Safety Report 8206677-7 (Version None)
Quarter: 2012Q1

REPORT INFORMATION
  Report Type: 
  Country: None (occurrence: None)
  Receive Date: 20120314
  Receipt Date: 20120308
  Transmission Date: 20120608
  Serious: No
  Sender: FDA-Public Use
  Company Number: US-BIOGENIDEC-2010BI029781

PATIENT
  Age: 44 Year
  Sex: Female

DRUGS (1)
  1. TYSABRI [Suspect]
     Indication: MULTIPLE SCLEROSIS
     Route: 042
     Dates: start: 20100212

REACTIONS (8)
  - FALL [None]
  - MENISCUS LESION [None]
  - DIZZINESS [None]
  - FATIGUE [None]
  - HEADACHE [None]
  - CONSTIPATION [None]
  - CONTUSION [None]
  - VISUAL IMPAIRMENT [None]
